FAERS Safety Report 10641907 (Version 1)
Quarter: 2014Q4

REPORT INFORMATION
  Report Type: Spontaneous
  Country: GB (occurrence: GB)
  Receive Date: 20141209
  Receipt Date: 20141209
  Transmission Date: 20150529
  Serious: Yes (Hospitalization)
  Sender: FDA-Public Use
  Company Number: GB-MYLANLABS-2014M1013378

PATIENT

DRUGS (1)
  1. ETHINYLESTRADIOL/NORELGESTROMIN TRANSDERMAL PATCH [Suspect]
     Active Substance: ETHINYL ESTRADIOL\NORELGESTROMIN
     Indication: CONTRACEPTION
     Route: 062

REACTIONS (3)
  - Posterior reversible encephalopathy syndrome [Recovered/Resolved]
  - Acute pulmonary oedema [Unknown]
  - Haemolytic uraemic syndrome [Recovering/Resolving]
